FAERS Safety Report 15957350 (Version 3)
Quarter: 2019Q1

REPORT INFORMATION
  Report Type: Report from Study
  Country: None (occurrence: US)
  Receive Date: 20190213
  Receipt Date: 20190306
  Transmission Date: 20190417
  Serious: Yes (Hospitalization)
  Sender: FDA-Public Use
  Company Number: US-ABBVIE-19P-163-2654841-00

PATIENT
  Age: 76 Year
  Sex: Male

DRUGS (8)
  1. VENETOCLAX. [Suspect]
     Active Substance: VENETOCLAX
     Indication: B-CELL LYMPHOMA
     Dosage: ON 26 FEB 2019 MOST RECENT DOSE OF VENETOCLAX (50 MG DAYS 2-5)
     Route: 048
     Dates: start: 20190119
  2. VENETOCLAX. [Suspect]
     Active Substance: VENETOCLAX
     Dosage: DAYS 9-11
     Route: 048
     Dates: start: 20190126, end: 20190128
  3. OBINUTUZUMAB. [Concomitant]
     Active Substance: OBINUTUZUMAB
     Indication: PYREXIA
     Dosage: MOST RECENT DOSE OF OBINUTUZUMAB ON 16 FEB 2019 (1000 MG 1 IN 1 D)
     Route: 042
     Dates: start: 20190118, end: 20190119
  4. VENETOCLAX. [Suspect]
     Active Substance: VENETOCLAX
     Dosage: DAYS 12-14
     Route: 048
     Dates: start: 20190129, end: 20190131
  5. VENETOCLAX. [Suspect]
     Active Substance: VENETOCLAX
     Dosage: DAYS 6-8
     Route: 048
     Dates: start: 20190123, end: 20190125
  6. IBRUTINIB [Suspect]
     Active Substance: IBRUTINIB
     Indication: B-CELL LYMPHOMA
     Route: 048
  7. LENALIDOMIDE [Concomitant]
     Active Substance: LENALIDOMIDE
     Indication: PYREXIA
     Dosage: MOST RECENT DOSE OF LENALOMIDE 26 FEB 2019
     Route: 048
     Dates: start: 20190118, end: 20190131
  8. PREDNISONE. [Concomitant]
     Active Substance: PREDNISONE
     Indication: PYREXIA
     Route: 048
     Dates: start: 20190118, end: 20190124

REACTIONS (6)
  - Conduction disorder [Not Recovered/Not Resolved]
  - Syncope [Not Recovered/Not Resolved]
  - Rash maculo-papular [Not Recovered/Not Resolved]
  - Hypotension [Not Recovered/Not Resolved]
  - Pyrexia [Not Recovered/Not Resolved]
  - Atrial flutter [Not Recovered/Not Resolved]

NARRATIVE: CASE EVENT DATE: 20190201
